FAERS Safety Report 8342699-3 (Version None)
Quarter: 2012Q2

REPORT INFORMATION
  Report Type: 
  Country: None (occurrence: None)
  Receive Date: 20120503
  Receipt Date: 20120419
  Transmission Date: 20120825
  Serious: Yes (Hospitalization)
  Sender: FDA-Public Use
  Company Number: NGX_01066_2012

PATIENT
  Age: 31 Year
  Sex: Female

DRUGS (7)
  1. AMITRIPTYLINE HCL [Concomitant]
  2. QUTENZA [Suspect]
     Indication: NEUROPATHY PERIPHERAL
     Dosage: (1.5 DF, [APPLIED TO TH 2-4 RIGHT] TOPICAL)
     Route: 061
     Dates: start: 20120418, end: 20120418
  3. QUTENZA [Suspect]
     Indication: CHEST PAIN
     Dosage: (1.5 DF, [APPLIED TO TH 2-4 RIGHT] TOPICAL)
     Route: 061
     Dates: start: 20120418, end: 20120418
  4. QUTENZA [Suspect]
     Indication: PROCEDURAL PAIN
     Dosage: (1.5 DF, [APPLIED TO TH 2-4 RIGHT] TOPICAL)
     Route: 061
     Dates: start: 20120418, end: 20120418
  5. PALLADONE [Concomitant]
  6. GABAPENTIN [Concomitant]
  7. LIDOCAIN /00033401/ [Concomitant]

REACTIONS (7)
  - CHEST PAIN [None]
  - APPLICATION SITE HYPERAESTHESIA [None]
  - APPLICATION SITE PAIN [None]
  - NEUROPATHY PERIPHERAL [None]
  - ACTIVITIES OF DAILY LIVING IMPAIRED [None]
  - APPLICATION SITE ERYTHEMA [None]
  - CONDITION AGGRAVATED [None]
